FAERS Safety Report 5008938-1 (Version None)
Quarter: 2006Q2

REPORT INFORMATION
  Report Type: 
  Country: None (occurrence: None)
  Receive Date: 20060518
  Receipt Date: 20060511
  Transmission Date: 20061013
  Serious: Yes (Other)
  Sender: FDA-Public Use
  Company Number: 221860

PATIENT
  Age: 18 Year
  Sex: Female
  Weight: 61.2 kg

DRUGS (7)
  1. XOLAIR [Suspect]
     Indication: ASTHMA
     Dosage: 375 MG, Q2W, SUBCUTANEOUS
     Route: 058
     Dates: start: 20050705
  2. ALLEGRA [Concomitant]
  3. VENTOLIN [Concomitant]
  4. INTAL [Concomitant]
  5. PULMICORT [Concomitant]
  6. ALLERGY DENSENSITIZATION THERAPY ANTI (ALLERGENIC EXTRACTS) [Concomitant]
  7. ADVAIR DISKUS 100/50 [Concomitant]

REACTIONS (5)
  - GLUCOSE URINE PRESENT [None]
  - HYPOTHYROIDISM [None]
  - POLLAKIURIA [None]
  - POLYDIPSIA [None]
  - POLYURIA [None]
